FAERS Safety Report 7723381-X (Version None)
Quarter: 2011Q3

REPORT INFORMATION
  Report Type: 
  Country: None (occurrence: None)
  Receive Date: 20110901
  Receipt Date: 20110826
  Transmission Date: 20111222
  Serious: No
  Sender: FDA-Public Use
  Company Number: US-PFIZER INC-2011199301

PATIENT
  Sex: Male

DRUGS (4)
  1. LOSARTAN POTASSIUM [Suspect]
     Dosage: UNK
  2. AMLODIPINE BESYLATE [Suspect]
     Dosage: UNK
  3. LISINOPRIL [Suspect]
     Dosage: UNK
  4. SIMVASTATIN [Suspect]
     Dosage: UNK

REACTIONS (5)
  - PRURITUS [None]
  - MYALGIA [None]
  - EYE DISORDER [None]
  - SNEEZING [None]
  - RASH [None]
